FAERS Safety Report 4677553-1 (Version None)
Quarter: 2005Q2

REPORT INFORMATION
  Report Type: 
  Country: None (occurrence: None)
  Receive Date: 20050527
  Receipt Date: 20050527
  Transmission Date: 20051028
  Serious: Yes (Life-Threatening)
  Sender: FDA-Public Use
  Company Number: None

PATIENT
  Age: 50 Year
  Sex: Female
  Weight: 57.1 kg

DRUGS (2)
  1. ALDESLEUKIN CHIRON CORPORATION [Suspect]
     Indication: MALIGNANT MELANOMA
     Dosage: 34 MIU EVEY 8 HOURS IV
     Route: 042
     Dates: start: 20050509, end: 20050513
  2. DECITABINE SUPERGEN [Suspect]
     Indication: MALIGNANT MELANOMA
     Dosage: 11 MG QD X 10 DAYS SQ
     Route: 058
     Dates: start: 20050425, end: 20050506

REACTIONS (2)
  - NEUTROPENIA [None]
  - NEUTROPHIL COUNT DECREASED [None]
